FAERS Safety Report 13296668 (Version 5)
Quarter: 2017Q3

REPORT INFORMATION
  Report Type: Spontaneous
  Country: US (occurrence: US)
  Receive Date: 20170306
  Receipt Date: 20170707
  Transmission Date: 20171127
  Serious: Yes (Other)
  Sender: FDA-Public Use
  Company Number: PHEH2017US006588

PATIENT
  Sex: Female

DRUGS (1)
  1. ZOFRAN [Suspect]
     Active Substance: ONDANSETRON HYDROCHLORIDE
     Indication: PRODUCT USED FOR UNKNOWN INDICATION
     Dosage: 8 MG, TID
     Route: 048
     Dates: start: 20061212, end: 20070111

REACTIONS (20)
  - Hyperventilation [Unknown]
  - Migraine [Unknown]
  - Back pain [Unknown]
  - Thoracic outlet syndrome [Unknown]
  - Pleurisy [Unknown]
  - Rib fracture [Unknown]
  - Hypoaesthesia [Unknown]
  - Costochondritis [Unknown]
  - Lower respiratory tract infection [Unknown]
  - Ligament sprain [Unknown]
  - Dizziness [Unknown]
  - Product use issue [Unknown]
  - Maternal exposure during pregnancy [Unknown]
  - Bronchitis [Unknown]
  - Anal fissure [Unknown]
  - Breast pain [Unknown]
  - Injury [Unknown]
  - Chest discomfort [Unknown]
  - Musculoskeletal chest pain [Unknown]
  - Dyspnoea [Unknown]
